FAERS Safety Report 18328021 (Version 1)
Quarter: 2020Q3

REPORT INFORMATION
  Report Type: Spontaneous
  Country: CN (occurrence: CN)
  Receive Date: 20200929
  Receipt Date: 20200929
  Transmission Date: 20201103
  Serious: Yes (Other)
  Sender: FDA-Public Use
  Company Number: CN-BAXTER-2020BAX019608

PATIENT
  Age: 39 Year
  Sex: Male
  Weight: 93.6 kg

DRUGS (6)
  1. ENDOXAN [Suspect]
     Active Substance: CYCLOPHOSPHAMIDE
     Indication: APLASTIC ANAEMIA
     Route: 041
     Dates: start: 20200428, end: 20200501
  2. METHOTREXATE. [Suspect]
     Active Substance: METHOTREXATE
     Indication: CHEMOTHERAPY
     Route: 041
     Dates: start: 20200510, end: 20200510
  3. METHOTREXATE. [Suspect]
     Active Substance: METHOTREXATE
     Dosage: FLUDARABINE + METHOTREXATE + RABBIT ANTI?HUMAN THYMIC IMMUNOGLOBULIN
     Route: 065
     Dates: start: 202004
  4. FLUDARABINE [Suspect]
     Active Substance: FLUDARABINE PHOSPHATE
     Indication: CHEMOTHERAPY
     Dosage: FLUDARABINE + METHOTREXATE + RABBIT ANTI?HUMAN THYMIC IMMUNOGLOBULIN
     Route: 065
     Dates: start: 202004
  5. METHOTREXATE. [Suspect]
     Active Substance: METHOTREXATE
     Indication: APLASTIC ANAEMIA
     Route: 041
     Dates: start: 20200508, end: 20200508
  6. RABBIT ANTI?HUMAN THYMIC IMMUNOGLOBULIN [Suspect]
     Active Substance: LAPINE T-LYMPHOCYTE IMMUNE GLOBULIN
     Indication: CHEMOTHERAPY
     Dosage: FLUDARABINE + METHOTREXATE + RABBIT ANTI?HUMAN THYMIC IMMUNOGLOBULIN
     Route: 065
     Dates: start: 202004

REACTIONS (2)
  - Cystitis haemorrhagic [Recovering/Resolving]
  - Hypokalaemia [Unknown]

NARRATIVE: CASE EVENT DATE: 20200511
